FAERS Safety Report 15016602 (Version 1)
Quarter: 2018Q2

REPORT INFORMATION
  Report Type: Spontaneous
  Country: US (occurrence: US)
  Receive Date: 20180615
  Receipt Date: 20180615
  Transmission Date: 20180711
  Serious: No
  Sender: FDA-Public Use
  Company Number: US-GALDERMA-US18011222

PATIENT
  Age: 68 Year
  Sex: Female

DRUGS (5)
  1. PROACTIV SOLUTION BLACKHEAD DISSOLVING [Concomitant]
     Active Substance: SALICYLIC ACID
     Indication: DRUG HYPERSENSITIVITY
     Route: 061
     Dates: start: 20180127, end: 20180202
  2. PROACTIV MD ADAPALENE ACNE TREATMENT [Suspect]
     Active Substance: ADAPALENE
     Indication: DRUG HYPERSENSITIVITY
     Dosage: 0.1%
     Route: 061
     Dates: start: 20180127, end: 20180202
  3. PROACTIV MD DEEP CLEANSING FACE WASH [Concomitant]
     Active Substance: COSMETICS
     Indication: DRUG HYPERSENSITIVITY
     Route: 061
     Dates: start: 20180127, end: 20180202
  4. PROACTIV DEEP CLEANSING WASH [Concomitant]
     Active Substance: SALICYLIC ACID
     Indication: DRUG HYPERSENSITIVITY
     Route: 061
     Dates: start: 20180127, end: 20180202
  5. PROACTIV SOLUTION DAILY PROTECTION PLUS SUNSCREEN SPF 30 [Suspect]
     Active Substance: AVOBENZONE\HOMOSALATE\OCTINOXATE\OCTISALATE\OXYBENZONE
     Indication: DRUG HYPERSENSITIVITY
     Route: 061
     Dates: start: 20180127, end: 20180202

REACTIONS (1)
  - Erythema [Recovering/Resolving]

NARRATIVE: CASE EVENT DATE: 20180130
